FAERS Safety Report 9097028 (Version 1)
Quarter: 2013Q1

REPORT INFORMATION
  Report Type: Spontaneous
  Country: TW (occurrence: None)
  Receive Date: 20130111
  Receipt Date: 20130111
  Transmission Date: 20140127
  Serious: Yes (Hospitalization, Other)
  Sender: FDA-Public Use
  Company Number: 2013P1000558

PATIENT
  Age: 62 Year
  Sex: Female

DRUGS (5)
  1. FLUOXETINE [Suspect]
     Indication: DEPRESSION
  2. ARIPIPRAZOLE [Suspect]
     Indication: DEPRESSION
  3. PROPRANOLOL [Concomitant]
  4. CLONAZEPAM [Concomitant]
  5. BUPROPION [Concomitant]

REACTIONS (13)
  - Death of relative [None]
  - Grief reaction [None]
  - Depression [None]
  - Depressed mood [None]
  - Anhedonia [None]
  - Insomnia [None]
  - Weight decreased [None]
  - Thinking abnormal [None]
  - Feeling guilty [None]
  - Inappropriate affect [None]
  - Drug effect decreased [None]
  - Sleep disorder [None]
  - Thinking abnormal [None]
